FAERS Safety Report 8094684-7 (Version None)
Quarter: 2012Q1

REPORT INFORMATION
  Report Type: 
  Country: None (occurrence: None)
  Receive Date: 20120129
  Receipt Date: 20111216
  Transmission Date: 20120608
  Serious: No
  Sender: FDA-Public Use
  Company Number: US-ABBOTT-11P-163-0885244-00

PATIENT
  Sex: Female
  Weight: 113.5 kg

DRUGS (10)
  1. CODEINE [Concomitant]
     Indication: PAIN
  2. LOVASA [Concomitant]
     Indication: BLOOD CHOLESTEROL INCREASED
  3. HUMIRA [Suspect]
     Indication: RHEUMATOID ARTHRITIS
     Dates: start: 20070601, end: 20111212
  4. MULTI-VITAMINS [Concomitant]
     Indication: VITAMIN SUPPLEMENTATION
  5. ATACAND [Concomitant]
     Indication: HYPERTENSION
  6. PROTONIX [Concomitant]
     Indication: ILL-DEFINED DISORDER
  7. POTASSIUM [Concomitant]
     Indication: MINERAL SUPPLEMENTATION
  8. PREMARIN [Concomitant]
     Indication: HORMONE REPLACEMENT THERAPY
  9. PROGESTERONE [Concomitant]
     Indication: PRODUCT USED FOR UNKNOWN INDICATION
  10. TOPROL-XL [Concomitant]
     Indication: HYPERTENSION

REACTIONS (2)
  - ARTHRALGIA [None]
  - DRUG INEFFECTIVE [None]
